FAERS Safety Report 7825761-0 (Version None)
Quarter: 2011Q4

REPORT INFORMATION
  Report Type: 
  Country: None (occurrence: None)
  Receive Date: 20111019
  Receipt Date: 20111011
  Transmission Date: 20120403
  Serious: Yes (Other)
  Sender: FDA-Public Use
  Company Number: PHHY2011AU60773

PATIENT
  Sex: Female

DRUGS (5)
  1. PARADOL [Concomitant]
     Dosage: 2 DF, UNK
  2. PARADOL [Concomitant]
     Dosage: 2 DF, EVERY 4 HOURS
  3. ZOLEDRONOC ACID [Suspect]
     Indication: OSTEOPOROSIS
     Dosage: UNK UKN, UNK
     Route: 042
     Dates: start: 20100904
  4. ZOMETA [Suspect]
     Indication: OSTEOPOROSIS
     Dosage: UNK UKN, YEARLY
     Route: 042
     Dates: start: 20080101
  5. ZOMETA [Suspect]
     Dosage: UNK UKN, UNK
     Route: 042
     Dates: start: 20090101

REACTIONS (11)
  - PAIN [None]
  - MUSCLE SPASMS [None]
  - ABDOMINAL PAIN [None]
  - SKIN DISORDER [None]
  - PYREXIA [None]
  - MALAISE [None]
  - DEPRESSION [None]
  - BACK PAIN [None]
  - HEADACHE [None]
  - FRACTURE [None]
  - MYALGIA [None]
